FAERS Safety Report 23069013 (Version 1)
Quarter: 2023Q4

REPORT INFORMATION
  Report Type: Spontaneous
  Country: US (occurrence: None)
  Receive Date: 20231013
  Receipt Date: 20231013
  Transmission Date: 20240110
  Serious: Yes (Life-Threatening, Hospitalization, Other)
  Sender: FDA-Public Use
  Company Number: None

PATIENT
  Age: 44 Year
  Sex: Female
  Weight: 59.85 kg

DRUGS (7)
  1. ISOBUTYL NITRITE [Suspect]
     Active Substance: ISOBUTYL NITRITE
     Dosage: OTHER FREQUENCY : NOT TO BE TAKEN AT;?
     Route: 048
     Dates: start: 20230923
  2. LEXAPRO [Concomitant]
     Active Substance: ESCITALOPRAM OXALATE
  3. ATIVAN [Concomitant]
     Active Substance: LORAZEPAM
  4. ADDERALL [Concomitant]
     Active Substance: AMPHETAMINE ASPARTATE\AMPHETAMINE SULFATE\DEXTROAMPHETAMINE SACCHARATE\DEXTROAMPHETAMINE SULFATE
  5. IBPROFIN [Concomitant]
  6. VITAMIN B [Concomitant]
     Active Substance: VITAMIN B
  7. VITAMIN D [Concomitant]
     Active Substance: VITAMIN D NOS

REACTIONS (10)
  - Substance use [None]
  - Accidental exposure to product [None]
  - Methaemoglobinaemia [None]
  - Near death experience [None]
  - Brain injury [None]
  - Seizure [None]
  - Cyanosis [None]
  - Hallucination [None]
  - Oxygen saturation decreased [None]
  - Coma [None]

NARRATIVE: CASE EVENT DATE: 20230923
